FAERS Safety Report 8985422 (Version 2)
Quarter: 2013Q1

REPORT INFORMATION
  Report Type: Report from Study
  Country: SE (occurrence: SE)
  Receive Date: 20121226
  Receipt Date: 20130108
  Transmission Date: 20140127
  Serious: Yes (Hospitalization)
  Sender: FDA-Public Use
  Company Number: SE-PFIZER INC-2012322780

PATIENT
  Age: 84 Year
  Sex: Male
  Weight: 86 kg

DRUGS (15)
  1. TROMBYL [Suspect]
     Indication: THROMBOSIS PROPHYLAXIS
     Dosage: 75 MG, 1X/DAY
     Route: 048
     Dates: start: 1990, end: 20121018
  2. DOLCONTIN [Suspect]
     Indication: SPINAL PAIN
     Dosage: AS NEEDED
     Route: 048
     Dates: start: 201210, end: 201211
  3. DICLOFENAC [Suspect]
     Indication: BONE PAIN
     Dosage: 50 MG, AS NEEDED
     Route: 048
     Dates: start: 20121003, end: 20121017
  4. ATENOLOL [Concomitant]
     Indication: HYPERTENSION
     Dosage: 25 MG, 1X/DAY
     Route: 048
     Dates: start: 1995
  5. SIMVASTATIN [Concomitant]
     Indication: HYPERLIPIDAEMIA
     Dosage: 40 MG, 1X/DAY
     Route: 048
     Dates: start: 1995
  6. PROPIOMAZINE [Concomitant]
     Indication: SEDATION
     Dosage: 12.5 MG, AS NEEDED
     Route: 048
     Dates: start: 201101
  7. LACTULOSE [Concomitant]
     Indication: CONSTIPATION
     Dosage: 15 ML, AS NEEDED
     Route: 048
     Dates: start: 20120601
  8. PARACETAMOL [Concomitant]
     Indication: MUSCULOSKELETAL CHEST PAIN
     Dosage: 500 MG, AS NEEDED
     Dates: start: 20120821
  9. LEUPRORELIN [Concomitant]
     Indication: PROSTATE CANCER
     Dosage: 0.25 MG, 1 IN 3 M
     Dates: start: 20110331
  10. BETAPRED [Concomitant]
     Indication: BONE PAIN
     Dosage: 4 MG, 1X/DAY
     Route: 048
     Dates: start: 20121026
  11. DUROFERON [Concomitant]
     Indication: ANAEMIA
     Dosage: 100 MG, 1X/DAY
     Route: 048
     Dates: start: 20121019
  12. OMEPRAZOLE [Concomitant]
     Indication: PROPHYLAXIS
     Dosage: 40 MG, 1X/DAY
     Route: 048
     Dates: start: 20121027
  13. KETOGAN [Concomitant]
     Indication: BONE PAIN
     Dosage: 5 MG, 3X/DAY
     Route: 048
     Dates: start: 20121025, end: 20121027
  14. LOSEC [Concomitant]
     Indication: GASTRIC ULCER
     Dosage: 20 MG, UNK
     Route: 048
     Dates: start: 20121018, end: 20121026
  15. ATACAND [Concomitant]
     Indication: HYPERTENSION
     Dosage: 16.00/12.50MG
     Route: 048

REACTIONS (5)
  - Gastrointestinal disorder [Recovered/Resolved]
  - Nausea [Recovered/Resolved]
  - Bone pain [Recovered/Resolved]
  - Anaemia [Recovered/Resolved]
  - Duodenal ulcer [Recovered/Resolved]
